FAERS Safety Report 24545098 (Version 1)
Quarter: 2024Q4

REPORT INFORMATION
  Report Type: Spontaneous
  Country: US (occurrence: US)
  Receive Date: 20241024
  Receipt Date: 20241024
  Transmission Date: 20250115
  Serious: Yes (Other)
  Sender: BAYER HEALTHCARE LLC
  Company Number: US-BAYER-2024A146065

PATIENT

DRUGS (1)
  1. AFRIN ORIGINAL NASAL [Suspect]
     Active Substance: OXYMETAZOLINE HYDROCHLORIDE
     Dosage: UNK

REACTIONS (5)
  - Drug dependence [Recovered/Resolved]
  - Surgery [None]
  - Sleep apnoea syndrome [Recovered/Resolved]
  - Snoring [Recovered/Resolved]
  - Poor quality sleep [Recovered/Resolved]
